FAERS Safety Report 5446129-0 (Version None)
Quarter: 2007Q3

REPORT INFORMATION
  Report Type: 
  Country: None (occurrence: None)
  Receive Date: 20070904
  Receipt Date: 20070808
  Transmission Date: 20080115
  Serious: Yes (Hospitalization)
  Sender: FDA-Public Use
  Company Number: 6036723

PATIENT
  Age: 17 Year
  Sex: Female

DRUGS (8)
  1. ETOPOSIDE [Suspect]
     Indication: HODGKIN'S DISEASE
     Dosage: 280 MG (280 MG,1 IN 1D); INTRAVENOUS (NOT OTHERWISE SPECIFIED)
     Route: 042
     Dates: start: 20070522, end: 20070527
  2. IFOSFAMIDE [Suspect]
     Indication: HODGKIN'S DISEASE
     Dosage: (2600 MG,1 IN 1 D); INTRAVENOUS (NO OTHERWISE SPECIFIED)
     Route: 042
     Dates: start: 20070522, end: 20070527
  3. NAVELBINE [Suspect]
     Indication: HODGKIN'S DISEASE
     Dosage: 26 MG (26 MG,1 IN 1 D); INTRAVENOUS (NOT OTHERWISE SPECIFIED)
     Route: 042
     Dates: start: 20070522, end: 20070527
  4. METHYL-GAG (MITOGUAZONE) [Suspect]
     Indication: HODGKIN'S DISEASE
     Dosage: (800 MG); INTRAVENOUS (NOT OTHERWISE SPECIFIED)
     Route: 042
     Dates: start: 20070522, end: 20070527
  5. SYMBICORT [Concomitant]
  6. BRICANYL [Concomitant]
  7. DESLORATADINE [Concomitant]
  8. SINGULAIR [Concomitant]

REACTIONS (8)
  - ABDOMINAL PAIN [None]
  - ASTHENIA [None]
  - HYPERAESTHESIA [None]
  - OEDEMA PERIPHERAL [None]
  - PAIN IN EXTREMITY [None]
  - PARAESTHESIA [None]
  - SEPTIC SHOCK [None]
  - TACHYCARDIA [None]
